FAERS Safety Report 5421009-5 (Version None)
Quarter: 2007Q3

REPORT INFORMATION
  Report Type: 
  Country: None (occurrence: None)
  Receive Date: 20070821
  Receipt Date: 20070821
  Transmission Date: 20080115
  Serious: Yes (Other)
  Sender: FDA-Public Use
  Company Number: A0672647A

PATIENT

DRUGS (1)
  1. ALLI [Suspect]
     Route: 048

REACTIONS (8)
  - ANAL DISCOMFORT [None]
  - ANAL HAEMORRHAGE [None]
  - FOOD CRAVING [None]
  - GASTROINTESTINAL DISORDER [None]
  - ILL-DEFINED DISORDER [None]
  - OEDEMA [None]
  - PROCTALGIA [None]
  - RECTAL DISCHARGE [None]
